FAERS Safety Report 16764674 (Version 3)
Quarter: 2019Q3

REPORT INFORMATION
  Report Type: Spontaneous
  Country: BE (occurrence: BE)
  Receive Date: 20190902
  Receipt Date: 20190927
  Transmission Date: 20191005
  Serious: Yes (Hospitalization, Other)
  Sender: FDA-Public Use
  Company Number: BE-CELLTRION INC.-2019BE023840

PATIENT

DRUGS (5)
  1. AZATHIOPRINE. [Suspect]
     Active Substance: AZATHIOPRINE
     Indication: CROHN^S DISEASE
     Dosage: 2.5 MG/KG, 1X/DAY
     Route: 065
  2. AZATHIOPRINE. [Suspect]
     Active Substance: AZATHIOPRINE
     Dosage: 2 MG/KG, DAILY
     Route: 065
  3. INFLIXIMAB (UNKNOWN) [Suspect]
     Active Substance: INFLIXIMAB
     Indication: CROHN^S DISEASE
     Dosage: 5 MG/KG, MONTHLY (EVERY 4 WEEKS (BASED ONTROUGH 1335 LEVELS) FOR SEVERAL YEARS)
     Route: 065
  4. AZATHIOPRINE. [Suspect]
     Active Substance: AZATHIOPRINE
     Dosage: 5 MG/KG, DAILY
     Route: 065
  5. INFLIXIMAB (UNKNOWN) [Suspect]
     Active Substance: INFLIXIMAB
     Dosage: 5 MG/KG EVERY 4 WEEKS
     Route: 065

REACTIONS (12)
  - Off label use [Unknown]
  - Campylobacter infection [Recovered/Resolved]
  - Nausea [Unknown]
  - Diarrhoea [Unknown]
  - Cellulitis [Recovered/Resolved]
  - Peripheral swelling [Unknown]
  - Inappropriate schedule of product administration [Unknown]
  - Pain in extremity [Unknown]
  - Vomiting [Unknown]
  - Oedema [Unknown]
  - Pyrexia [Unknown]
  - Fall [Unknown]
